FAERS Safety Report 16404876 (Version 1)
Quarter: 2019Q2

REPORT INFORMATION
  Report Type: Spontaneous
  Country: CA (occurrence: CA)
  Receive Date: 20190607
  Receipt Date: 20190607
  Transmission Date: 20190711
  Serious: Yes (Other)
  Sender: FDA-Public Use
  Company Number: CA-TEVA-2019-CA-1057623

PATIENT
  Sex: Female

DRUGS (3)
  1. RIFAMPIN. [Concomitant]
     Active Substance: RIFAMPIN
  2. XELJANZ [Concomitant]
     Active Substance: TOFACITINIB CITRATE
  3. CEPHALEXIN. [Suspect]
     Active Substance: CEPHALEXIN
     Route: 065
     Dates: start: 201701, end: 201709

REACTIONS (2)
  - Hypersensitivity [Unknown]
  - Colitis ulcerative [Unknown]
